FAERS Safety Report 10085901 (Version 1)
Quarter: 2014Q2

REPORT INFORMATION
  Report Type: Spontaneous
  Country: US (occurrence: None)
  Receive Date: 20140416
  Receipt Date: 20140416
  Transmission Date: 20141212
  Serious: Yes (Other)
  Sender: FDA-Public Use
  Company Number: 09-AUR-09607

PATIENT
  Sex: 0

DRUGS (1)
  1. FLUOXETINE [Suspect]

REACTIONS (3)
  - Erythema [None]
  - Loss of consciousness [None]
  - Hypertension [None]
